FAERS Safety Report 24228379 (Version 1)
Quarter: 2024Q3

REPORT INFORMATION
  Report Type: Spontaneous
  Country: US (occurrence: None)
  Receive Date: 20240819
  Receipt Date: 20240819
  Transmission Date: 20241016
  Serious: Yes (Other)
  Sender: Public
  Company Number: None

PATIENT
  Age: 67 Year
  Sex: Female
  Weight: 60.75 kg

DRUGS (9)
  1. AZELASTINE HYDROCHLORIDE [Suspect]
     Active Substance: AZELASTINE HYDROCHLORIDE
     Indication: Hypersensitivity
     Dosage: FREQUENCY : TWICE A DAY;?
     Route: 055
     Dates: start: 20240722, end: 20240813
  2. TIROSINT [Concomitant]
     Active Substance: LEVOTHYROXINE SODIUM
  3. CLARITIN [Concomitant]
     Active Substance: LORATADINE
  4. VITAMIN C [Concomitant]
     Active Substance: ASCORBIC ACID
  5. ZINC PICOLINATE [Concomitant]
     Active Substance: ZINC PICOLINATE
  6. VITAMIN D [Concomitant]
     Active Substance: VITAMIN D NOS
  7. VITAMIN K [Concomitant]
     Active Substance: PHYTONADIONE
  8. MAGNESIUM [Concomitant]
     Active Substance: MAGNESIUM
  9. IRON BIGLYCINATE [Concomitant]

REACTIONS (3)
  - Nasal discomfort [None]
  - Headache [None]
  - Therapy cessation [None]

NARRATIVE: CASE EVENT DATE: 20240813
